FAERS Safety Report 6679662-4 (Version None)
Quarter: 2010Q2

REPORT INFORMATION
  Report Type: 
  Country: None (occurrence: None)
  Receive Date: 20100413
  Receipt Date: 20100407
  Transmission Date: 20101027
  Serious: Yes (Life-Threatening, Hospitalization)
  Sender: FDA-Public Use
  Company Number: B0645122A

PATIENT
  Age: 62 Year
  Sex: Female

DRUGS (11)
  1. ARIXTRA [Suspect]
     Indication: THROMBOSIS PROPHYLAXIS
     Dosage: 7.5MG PER DAY
     Route: 065
     Dates: start: 20100304, end: 20100315
  2. METFORMIN HCL [Concomitant]
     Dosage: 1000MG THREE TIMES PER DAY
     Route: 065
     Dates: start: 20091214
  3. NEBILOX [Concomitant]
     Dosage: 5MG UNKNOWN
     Route: 065
  4. RAMIPRIL [Concomitant]
     Dosage: 5MG PER DAY
     Route: 065
     Dates: start: 20100112
  5. LOXEN LP [Concomitant]
     Dosage: 50MG PER DAY
     Route: 065
     Dates: start: 20100121
  6. DIAMICRON [Concomitant]
     Dosage: 80MG PER DAY
     Route: 065
     Dates: start: 20100210
  7. ZOLOFT [Concomitant]
     Route: 065
     Dates: start: 20100224
  8. TARDYFERON [Concomitant]
     Route: 065
  9. PYOSTACINE [Concomitant]
     Dosage: 500MG SIX TIMES PER DAY
     Route: 065
  10. XANAX [Concomitant]
     Dosage: .25MG PER DAY
     Route: 065
  11. ULTRALEVURE [Concomitant]
     Route: 065

REACTIONS (3)
  - ANAEMIA [None]
  - MUSCLE HAEMORRHAGE [None]
  - OVERDOSE [None]
